FAERS Safety Report 16355574 (Version 1)
Quarter: 2019Q2

REPORT INFORMATION
  Report Type: Spontaneous
  Country: US (occurrence: US)
  Receive Date: 20190525
  Receipt Date: 20190525
  Transmission Date: 20190711
  Serious: No
  Sender: FDA-Public Use
  Company Number: US-009507513-1905USA010367

PATIENT
  Age: 70 Year
  Sex: Female

DRUGS (4)
  1. SEROQUEL [Concomitant]
     Active Substance: QUETIAPINE FUMARATE
     Dosage: UNK
  2. PROCARDIA XL [Concomitant]
     Active Substance: NIFEDIPINE
     Dosage: UNK
  3. BELSOMRA [Suspect]
     Active Substance: SUVOREXANT
     Dosage: 2 (20 MG) TABLETS AT NIGHT
     Route: 048
     Dates: start: 20190520, end: 20190520
  4. BELSOMRA [Suspect]
     Active Substance: SUVOREXANT
     Dosage: 1 (20 MG) TABLET AT NIGHT
     Route: 048
     Dates: start: 20190519, end: 20190519

REACTIONS (2)
  - Overdose [Unknown]
  - Drug ineffective [Not Recovered/Not Resolved]

NARRATIVE: CASE EVENT DATE: 20190519
